FAERS Safety Report 20113772 (Version 1)
Quarter: 2021Q4

REPORT INFORMATION
  Report Type: Report from Study
  Country: EC (occurrence: EC)
  Receive Date: 20211125
  Receipt Date: 20211125
  Transmission Date: 20220303
  Serious: Yes (Death)
  Sender: FDA-Public Use
  Company Number: EC-NOVARTISPH-NVSC2021EC269591

PATIENT
  Age: 51 Year
  Sex: Female

DRUGS (1)
  1. TASIGNA [Suspect]
     Active Substance: NILOTINIB
     Indication: Chronic myeloid leukaemia
     Dosage: 100 MG, BID
     Route: 048
     Dates: start: 20210719

REACTIONS (3)
  - Chronic myeloid leukaemia [Fatal]
  - Oncologic complication [Fatal]
  - Incorrect dose administered [Unknown]

NARRATIVE: CASE EVENT DATE: 20210719
